FAERS Safety Report 22004665 (Version 1)
Quarter: 2023Q1

REPORT INFORMATION
  Report Type: Spontaneous
  Country: IN (occurrence: IN)
  Receive Date: 20230217
  Receipt Date: 20230217
  Transmission Date: 20230417
  Serious: Yes (Death, Life-Threatening, Hospitalization)
  Sender: FDA-Public Use
  Company Number: None

PATIENT
  Age: 50 Year
  Sex: Male

DRUGS (18)
  1. MYCOPHENOLATE MOFETIL [Suspect]
     Active Substance: MYCOPHENOLATE MOFETIL
     Indication: Prophylaxis against graft versus host disease
     Dosage: UNK
     Route: 065
  2. POLYMYXIN B [Suspect]
     Active Substance: POLYMYXIN B
     Indication: Bacteraemia
     Dosage: UNK
     Route: 065
  3. POLYMYXIN B [Suspect]
     Active Substance: POLYMYXIN B
     Indication: Aeromonas infection
  4. TEICOPLANIN [Suspect]
     Active Substance: TEICOPLANIN
     Indication: Bacteraemia
     Dosage: UNK
     Route: 065
  5. TEICOPLANIN [Suspect]
     Active Substance: TEICOPLANIN
     Indication: Aeromonas infection
  6. DEXAMETHASONE [Suspect]
     Active Substance: DEXAMETHASONE
     Indication: Prophylaxis against graft versus host disease
     Dosage: UNK
     Route: 065
  7. CEFOPERAZONE [Suspect]
     Active Substance: CEFOPERAZONE
     Indication: Aeromonas infection
     Dosage: UNK
     Route: 065
  8. CEFOPERAZONE [Suspect]
     Active Substance: CEFOPERAZONE
     Indication: Bacteraemia
  9. SULBACTAM [Suspect]
     Active Substance: SULBACTAM
     Indication: Bacteraemia
     Dosage: UNK
     Route: 065
  10. SULBACTAM [Suspect]
     Active Substance: SULBACTAM
     Indication: Aeromonas infection
  11. AVIBACTAM SODIUM\CEFTAZIDIME [Suspect]
     Active Substance: AVIBACTAM SODIUM\CEFTAZIDIME
     Indication: Bacteraemia
     Dosage: UNK
     Route: 065
  12. AVIBACTAM SODIUM\CEFTAZIDIME [Suspect]
     Active Substance: AVIBACTAM SODIUM\CEFTAZIDIME
     Indication: Aeromonas infection
  13. CIPROFLOXACIN [Suspect]
     Active Substance: CIPROFLOXACIN
     Indication: Bacteraemia
     Dosage: UNK
     Route: 065
  14. CIPROFLOXACIN [Suspect]
     Active Substance: CIPROFLOXACIN
     Indication: Aeromonas infection
  15. MEROPENEM [Concomitant]
     Active Substance: MEROPENEM
     Indication: Bacteraemia
     Dosage: UNK
     Route: 065
  16. MEROPENEM [Concomitant]
     Active Substance: MEROPENEM
     Indication: Aeromonas infection
  17. ANIDULAFUNGIN [Concomitant]
     Active Substance: ANIDULAFUNGIN
     Indication: Antifungal treatment
     Dosage: UNK
     Route: 065
  18. CLINDAMYCIN [Concomitant]
     Active Substance: CLINDAMYCIN
     Indication: Antibiotic therapy
     Dosage: UNK
     Route: 065

REACTIONS (11)
  - Bacteraemia [Fatal]
  - Aeromonas infection [Fatal]
  - Drug ineffective [Fatal]
  - Altered state of consciousness [Unknown]
  - Atrial fibrillation [Unknown]
  - Cardiac arrest [Unknown]
  - Multiple organ dysfunction syndrome [Unknown]
  - Thrombocytopenia [Unknown]
  - Anuria [Unknown]
  - Necrotising fasciitis [Unknown]
  - Fournier^s gangrene [Unknown]
